FAERS Safety Report 4431712-1 (Version None)
Quarter: 2004Q3

REPORT INFORMATION
  Report Type: 
  Country: None (occurrence: None)
  Receive Date: 20040825
  Receipt Date: 20040805
  Transmission Date: 20050211
  Serious: Yes (Disabling)
  Sender: FDA-Public Use
  Company Number: JP-BRISTOL-MYERS SQUIBB COMPANY-12661237

PATIENT
  Age: 64 Year
  Sex: Male

DRUGS (6)
  1. TAXOL [Suspect]
     Indication: NON-SMALL CELL LUNG CANCER
     Dosage: THERAPY DATES: 14-APR-2004 TO 28-JUN-2004
     Route: 042
     Dates: start: 20040628, end: 20040628
  2. PARAPLATIN [Suspect]
     Indication: NON-SMALL CELL LUNG CANCER
     Dosage: THERAPY DATES: 14-APR-2004 TO 14-JUN-2004
     Route: 042
     Dates: start: 20040614, end: 20040614
  3. DEXAMETHASONE [Concomitant]
     Route: 042
     Dates: start: 20040414, end: 20040628
  4. RANITIDINE HCL [Concomitant]
     Route: 042
     Dates: start: 20040414, end: 20040628
  5. DIPHENHYDRAMINE HCL [Concomitant]
     Route: 048
     Dates: start: 20040414, end: 20040628
  6. ONDANSETRON [Concomitant]
     Route: 042
     Dates: start: 20040614, end: 20040628

REACTIONS (1)
  - INTERSTITIAL LUNG DISEASE [None]
